FAERS Safety Report 4831753-6 (Version None)
Quarter: 2005Q4

REPORT INFORMATION
  Report Type: 
  Country: None (occurrence: None)
  Receive Date: 20051118
  Receipt Date: 20051107
  Transmission Date: 20060501
  Serious: Yes (Hospitalization)
  Sender: FDA-Public Use
  Company Number: US-MERCK-0511USA01452

PATIENT
  Age: 37 Year
  Sex: Female
  Weight: 99 kg

DRUGS (9)
  1. VIOXX [Suspect]
     Indication: BACK PAIN
     Route: 048
     Dates: start: 20010309, end: 20020531
  2. TOPROL-XL [Concomitant]
     Route: 065
  3. ELAVIL [Concomitant]
     Route: 065
  4. ULTRAM [Concomitant]
     Route: 065
  5. DEPO-PROVERA [Concomitant]
     Route: 065
  6. ASPIRIN [Concomitant]
     Route: 065
  7. AMITRIPTYLIN [Concomitant]
     Route: 065
  8. MOTRIN [Concomitant]
     Route: 065
  9. MANNITOL [Concomitant]
     Route: 065

REACTIONS (10)
  - ATRIAL SEPTAL DEFECT [None]
  - BACK PAIN [None]
  - BLOOD GLUCOSE INCREASED [None]
  - CAROTID ARTERY OCCLUSION [None]
  - CEREBROVASCULAR ACCIDENT [None]
  - CHEYNE-STOKES RESPIRATION [None]
  - CONVULSION [None]
  - HEPATITIS C [None]
  - LOSS OF CONSCIOUSNESS [None]
  - SOMNOLENCE [None]
